FAERS Safety Report 16589824 (Version 1)
Quarter: 2019Q3

REPORT INFORMATION
  Report Type: Other
  Country: US (occurrence: US)
  Receive Date: 20190718
  Receipt Date: 20190718
  Transmission Date: 20191004
  Serious: No
  Sender: FDA-Public Use
  Company Number: US-SWEDISH ORPHAN BIOVITRUM-2019US1019

PATIENT
  Sex: Male

DRUGS (4)
  1. ALLOPURINOL. [Concomitant]
     Active Substance: ALLOPURINOL
  2. KINERET [Suspect]
     Active Substance: ANAKINRA
     Indication: GOUT
     Route: 058
     Dates: start: 20190417
  3. KINERET [Suspect]
     Active Substance: ANAKINRA
     Indication: GOUTY TOPHUS
  4. LASIX [Concomitant]
     Active Substance: FUROSEMIDE

REACTIONS (2)
  - Off label use [Not Recovered/Not Resolved]
  - Blood uric acid increased [Unknown]
